FAERS Safety Report 6980441-9 (Version None)
Quarter: 2010Q3

REPORT INFORMATION
  Report Type: 
  Country: None (occurrence: None)
  Receive Date: 20100909
  Receipt Date: 20100824
  Transmission Date: 20110219
  Serious: Yes (Death, Hospitalization)
  Sender: FDA-Public Use
  Company Number: 2008002705

PATIENT
  Age: 80 Year
  Sex: Male

DRUGS (7)
  1. ERLOTINIB / PLACEBO (ERLOTINIB) (TABLET) (ERLOTINIB) [Suspect]
     Indication: NON-SMALL CELL LUNG CANCER
     Dosage: (150 MG, QD), ORAL; (100 MG, QD), ORAL
     Route: 048
     Dates: start: 20080408, end: 20081111
  2. ERLOTINIB / PLACEBO (ERLOTINIB) (TABLET) (ERLOTINIB) [Suspect]
     Indication: NON-SMALL CELL LUNG CANCER
     Dosage: (150 MG, QD), ORAL; (100 MG, QD), ORAL
     Route: 048
     Dates: start: 20081111, end: 20081208
  3. ALENDRONIC ACID (ALENDRONIC ACID) [Concomitant]
  4. CALCICHEW D3 [Concomitant]
  5. OMEPRAZOLE [Concomitant]
  6. PREDNISOLONE [Concomitant]
  7. SERETIDE (SERETIDE) [Concomitant]

REACTIONS (3)
  - ATAXIA [None]
  - DISEASE PROGRESSION [None]
  - LUNG ADENOCARCINOMA METASTATIC [None]
